FAERS Safety Report 7934397-2 (Version None)
Quarter: 2011Q4

REPORT INFORMATION
  Report Type: 
  Country: None (occurrence: None)
  Receive Date: 20111122
  Receipt Date: 20111115
  Transmission Date: 20120403
  Serious: Yes (Other)
  Sender: FDA-Public Use
  Company Number: US-GLAXOSMITHKLINE-A0940386A

PATIENT
  Age: 58 Year
  Sex: Male
  Weight: 104.5 kg

DRUGS (9)
  1. VOTRIENT [Suspect]
     Indication: PRODUCT USED FOR UNKNOWN INDICATION
     Dosage: 800MG PER DAY
     Route: 048
  2. HYDROXYZINE HYDROCHLORIDE [Concomitant]
  3. MORPHINE SULFATE [Concomitant]
  4. FUROSEMIDE [Concomitant]
  5. OXYCONTIN [Concomitant]
  6. AMBIEN [Concomitant]
  7. OXYCODONE HCL [Concomitant]
  8. PROCHLOROPERAZINE [Concomitant]
  9. GABAPENTIN [Concomitant]

REACTIONS (8)
  - FATIGUE [None]
  - ALOPECIA [None]
  - RASH [None]
  - HEADACHE [None]
  - NAUSEA [None]
  - VOMITING [None]
  - HYPERTENSIVE CRISIS [None]
  - ABDOMINAL DISCOMFORT [None]
